FAERS Safety Report 6522968-X (Version None)
Quarter: 2009Q4

REPORT INFORMATION
  Report Type: 
  Country: None (occurrence: None)
  Receive Date: 20091230
  Receipt Date: 20091218
  Transmission Date: 20100525
  Serious: Yes (Life-Threatening)
  Sender: FDA-Public Use
  Company Number: DE-WATSON-2009-10886

PATIENT

DRUGS (3)
  1. LAMOTRIGINE (WATSON LABORATORIES) [Suspect]
     Indication: BIPOLAR DISORDER
     Dosage: ^100^, UNKNOWN
     Route: 048
     Dates: start: 20090801
  2. VALPROATE SODIUM [Concomitant]
     Indication: BIPOLAR DISORDER
     Dosage: ^1200^ , UNK
     Route: 048
  3. VENLAFAXINE [Concomitant]
     Indication: BIPOLAR DISORDER
     Dosage: ^150^, UNKNOWN
     Route: 048

REACTIONS (3)
  - ACUTE GENERALISED EXANTHEMATOUS PUSTULOSIS [None]
  - HYPOALBUMINAEMIA [None]
  - PROTEINURIA [None]
